FAERS Safety Report 25328454 (Version 1)
Quarter: 2025Q2

REPORT INFORMATION
  Report Type: Spontaneous
  Country: CN (occurrence: CN)
  Receive Date: 20250518
  Receipt Date: 20250518
  Transmission Date: 20250716
  Serious: Yes (Hospitalization, Other)
  Sender: Haleon PLC
  Company Number: CN-HALEON-2242594

PATIENT
  Age: 42 Year
  Sex: Male

DRUGS (3)
  1. DICLOFENAC SODIUM [Suspect]
     Active Substance: DICLOFENAC SODIUM
     Indication: Gout
  2. COLCHICINE [Concomitant]
     Active Substance: COLCHICINE
     Indication: Arthralgia
     Dosage: FOR 3 DAYS
  3. COLCHICINE [Concomitant]
     Active Substance: COLCHICINE
     Indication: Oedema peripheral

REACTIONS (18)
  - Fatigue [Unknown]
  - Acute kidney injury [Recovered/Resolved]
  - Tubulointerstitial nephritis [Recovered/Resolved]
  - Nephrotic syndrome [Recovered/Resolved]
  - Renal injury [Recovered/Resolved]
  - Nephrotic syndrome [Recovered/Resolved]
  - Decreased appetite [Unknown]
  - Oedema peripheral [Unknown]
  - Protein urine present [Recovered/Resolved]
  - Liver injury [Unknown]
  - Metabolic acidosis [Unknown]
  - Hyperphosphataemia [Unknown]
  - Renal hypertension [Unknown]
  - Diarrhoea [Recovered/Resolved]
  - Faeces discoloured [Recovering/Resolving]
  - Oedema [Unknown]
  - Urine output decreased [Unknown]
  - Hyponatraemia [Unknown]
